FAERS Safety Report 8213228-X (Version None)
Quarter: 2012Q1

REPORT INFORMATION
  Report Type: 
  Country: None (occurrence: None)
  Receive Date: 20120315
  Receipt Date: 20120308
  Transmission Date: 20120608
  Serious: Yes (Death, Hospitalization)
  Sender: FDA-Public Use
  Company Number: JP-PFIZER INC-2011277682

PATIENT
  Age: 75 Year
  Sex: Male
  Weight: 60 kg

DRUGS (13)
  1. KYORIN AP 2 [Concomitant]
     Indication: GASTROENTERITIS
     Dosage: 2 G, 1X/DAY
     Dates: start: 20111111, end: 20111113
  2. DEXTROMETHORPHAN HYDROBROMIDE [Concomitant]
     Indication: GASTROENTERITIS
     Dosage: 30 MG, 1X/DAY
     Dates: start: 20111111, end: 20111113
  3. EPLERENONE [Suspect]
     Indication: CARDIAC FAILURE CHRONIC
     Dosage: 25 MG, 1X/DAY
     Route: 048
     Dates: start: 20110822, end: 20110829
  4. CARVEDILOL [Concomitant]
     Indication: CARDIAC FAILURE
     Dosage: 2.5 MG, 1X/DAY
     Route: 048
     Dates: start: 20110503, end: 20111113
  5. ACARDI [Concomitant]
     Indication: CARDIAC FAILURE
     Dosage: 2.5 MG, 1X/DAY
     Route: 048
     Dates: start: 20110507, end: 20111113
  6. EPLERENONE [Suspect]
     Dosage: ONCE DAILY
     Route: 048
     Dates: start: 20110830, end: 20111110
  7. EPLERENONE [Suspect]
     Dosage: ONCE DAILY
     Route: 048
     Dates: start: 20111112, end: 20111113
  8. LASIX [Concomitant]
     Dosage: 4 ML/H
     Dates: end: 20111114
  9. LEVOFLOXACIN [Suspect]
     Indication: GASTROENTERITIS
     Dosage: 300 MG, 1X/DAY
     Route: 048
     Dates: start: 20111111, end: 20111113
  10. ALLOPURINOL [Suspect]
     Indication: HYPERLIPIDAEMIA
     Dosage: 100 MG, 1X/DAY
     Route: 048
     Dates: start: 20110916, end: 20111113
  11. MUCOSTA [Concomitant]
     Indication: GASTROENTERITIS
     Dosage: 300 MG, 1X/DAY
     Route: 048
     Dates: start: 20111111, end: 20111113
  12. PRIMPERAN TAB [Concomitant]
     Indication: GASTROENTERITIS
     Dosage: 30 MG, 1X/DAY
     Route: 048
     Dates: start: 20111111, end: 20111113
  13. LASIX [Concomitant]
     Indication: CARDIAC FAILURE
     Dosage: 60 MG, 1X/DAY
     Route: 048
     Dates: start: 20110513, end: 20111113

REACTIONS (4)
  - MULTI-ORGAN FAILURE [None]
  - DISSEMINATED INTRAVASCULAR COAGULATION [None]
  - GASTROENTERITIS [None]
  - RHABDOMYOLYSIS [None]
